FAERS Safety Report 9448923 (Version 1)
Quarter: 2013Q3

REPORT INFORMATION
  Report Type: Spontaneous
  Country: FR (occurrence: None)
  Receive Date: 20130806
  Receipt Date: 20130806
  Transmission Date: 20140515
  Serious: Yes (Other)
  Sender: FDA-Public Use
  Company Number: FR-INDICUS PHARMA-000099

PATIENT
  Age: 32 Year
  Sex: Female

DRUGS (1)
  1. METFORMIN HYDROCHLORIDE [Suspect]
     Indication: PRODUCT USED FOR UNKNOWN INDICATION

REACTIONS (6)
  - Pregnancy [None]
  - Premature rupture of membranes [None]
  - Abortion spontaneous [None]
  - Amniotic cavity infection [None]
  - Cervix cerclage procedure [None]
  - Maternal exposure before pregnancy [None]
